FAERS Safety Report 14168262 (Version 1)
Quarter: 2017Q4

REPORT INFORMATION
  Report Type: Spontaneous
  Country: IT (occurrence: IT)
  Receive Date: 20171108
  Receipt Date: 20171108
  Transmission Date: 20180321
  Serious: Yes (Hospitalization)
  Sender: FDA-Public Use
  Company Number: IT-ROCHE-2017590

PATIENT
  Age: 83 Year
  Sex: Male

DRUGS (5)
  1. RAMIPRIL. [Concomitant]
     Active Substance: RAMIPRIL
  2. MABTHERA [Suspect]
     Active Substance: RITUXIMAB
     Indication: NON-HODGKIN^S LYMPHOMA
     Route: 042
     Dates: start: 20161202, end: 20161202
  3. CRESTOR [Concomitant]
     Active Substance: ROSUVASTATIN CALCIUM
  4. FLEBOCORTID [Concomitant]
     Active Substance: HYDROCORTISONE SODIUM SUCCINATE
     Route: 065
  5. PERFALGAN [Concomitant]
     Active Substance: ACETAMINOPHEN

REACTIONS (4)
  - Hyperpyrexia [Unknown]
  - Syncope [Unknown]
  - Loss of consciousness [Unknown]
  - Presyncope [Unknown]

NARRATIVE: CASE EVENT DATE: 20161202
